FAERS Safety Report 7927192-1 (Version None)
Quarter: 2011Q4

REPORT INFORMATION
  Report Type: 
  Country: None (occurrence: None)
  Receive Date: 20111118
  Receipt Date: 20111110
  Transmission Date: 20120403
  Serious: Yes (Hospitalization)
  Sender: FDA-Public Use
  Company Number: US-UCBSA-041351

PATIENT
  Age: 25 Year
  Sex: Female
  Weight: 46.7 kg

DRUGS (8)
  1. ZOFRAN [Concomitant]
     Dosage: 1 TABLET TWICE A DAY
     Route: 048
  2. LONOTIL [Concomitant]
     Dosage: 2.5-0.25 MG 1-2 TABLETS
     Route: 048
  3. FLORASTOR [Concomitant]
     Indication: CROHN'S DISEASE
  4. XANAX [Concomitant]
     Route: 048
  5. AMOXICILLIN [Concomitant]
     Dosage: 1000-62.5; 2 MG, 2 TABLETS TWO TIMES A DAY
     Route: 048
  6. APRISO [Concomitant]
     Indication: CROHN'S DISEASE
     Dates: start: 20090901
  7. CIMZIA [Suspect]
     Indication: CROHN'S DISEASE
     Route: 058
     Dates: start: 20110829
  8. AMBIEN [Concomitant]
     Route: 048

REACTIONS (7)
  - INFECTION [None]
  - GASTROOESOPHAGEAL REFLUX DISEASE [None]
  - JEJUNAL ULCER [None]
  - INFUSION SITE CELLULITIS [None]
  - DEVICE RELATED INFECTION [None]
  - HYPERCOAGULATION [None]
  - DUODENAL ULCER [None]
